FAERS Safety Report 20427827 (Version 1)
Quarter: 2022Q1

REPORT INFORMATION
  Report Type: Spontaneous
  Country: CN (occurrence: CN)
  Receive Date: 20220204
  Receipt Date: 20220204
  Transmission Date: 20220423
  Serious: Yes (Hospitalization)
  Sender: FDA-Public Use
  Company Number: CN-ABBVIE-22K-035-4264602-00

PATIENT
  Age: 15 Year
  Sex: Male

DRUGS (2)
  1. VALPROATE SODIUM [Suspect]
     Active Substance: VALPROATE SODIUM
     Indication: Emotional disorder of childhood
     Route: 048
     Dates: start: 20190220, end: 20190222
  2. OLANZAPINE [Suspect]
     Active Substance: OLANZAPINE
     Indication: Emotional disorder of childhood
     Route: 048
     Dates: start: 20190220, end: 20190222

REACTIONS (1)
  - Hepatocellular injury [Recovering/Resolving]

NARRATIVE: CASE EVENT DATE: 20190222
